FAERS Safety Report 15584392 (Version 1)
Quarter: 2018Q4

REPORT INFORMATION
  Report Type: Spontaneous
  Country: US (occurrence: US)
  Receive Date: 20181103
  Receipt Date: 20181103
  Transmission Date: 20190205
  Serious: No
  Sender: FDA-Public Use
  Company Number: None

PATIENT
  Age: 24 Year
  Sex: Female
  Weight: 56.25 kg

DRUGS (3)
  1. ADVIL [Concomitant]
     Active Substance: IBUPROFEN
  2. ALBUTEROL. [Concomitant]
     Active Substance: ALBUTEROL
  3. MIRENA [Suspect]
     Active Substance: LEVONORGESTREL

REACTIONS (3)
  - Movement disorder [None]
  - Pelvic pain [None]
  - Gait disturbance [None]

NARRATIVE: CASE EVENT DATE: 20180903
